FAERS Safety Report 25727032 (Version 1)
Quarter: 2025Q3

REPORT INFORMATION
  Report Type: Spontaneous
  Country: US (occurrence: US)
  Receive Date: 20250826
  Receipt Date: 20250826
  Transmission Date: 20251021
  Serious: Yes (Hospitalization, Other)
  Sender: AMGEN
  Company Number: US-AMGEN-USASP2025165562

PATIENT
  Age: 12 Year
  Sex: Male

DRUGS (16)
  1. PREDNISONE [Suspect]
     Active Substance: PREDNISONE
     Indication: Mouth ulceration
     Dosage: 20 MILLIGRAM, QD (SHORT COURSE)
     Route: 065
  2. PREDNISONE [Suspect]
     Active Substance: PREDNISONE
     Indication: Gingival ulceration
  3. RITUXIMAB [Suspect]
     Active Substance: RITUXIMAB
     Indication: Epstein-Barr viraemia
     Route: 065
  4. ABATACEPT [Suspect]
     Active Substance: ABATACEPT
     Indication: Prophylaxis against graft versus host disease
     Route: 065
  5. SULFAMETHOXAZOLE\TRIMETHOPRIM [Concomitant]
     Active Substance: SULFAMETHOXAZOLE\TRIMETHOPRIM
     Indication: Prophylaxis
  6. ITRACONAZOLE [Concomitant]
     Active Substance: ITRACONAZOLE
     Indication: Prophylaxis
  7. ALEMTUZUMAB [Concomitant]
     Active Substance: ALEMTUZUMAB
  8. FLUDARABINE [Concomitant]
     Active Substance: FLUDARABINE PHOSPHATE
  9. THIOTEPA [Concomitant]
     Active Substance: THIOTEPA
  10. MELPHALAN [Concomitant]
     Active Substance: MELPHALAN
  11. MYCOPHENOLATE MOFETIL [Concomitant]
     Active Substance: MYCOPHENOLATE MOFETIL
     Indication: Prophylaxis against graft versus host disease
  12. TACROLIMUS [Concomitant]
     Active Substance: TACROLIMUS
     Indication: Prophylaxis against graft versus host disease
  13. MESALAMINE [Concomitant]
     Active Substance: MESALAMINE
     Indication: Colitis
     Route: 065
  14. DEXAMETHASONE [Concomitant]
     Active Substance: DEXAMETHASONE
     Indication: Gingival ulceration
     Route: 061
  15. DEXAMETHASONE [Concomitant]
     Active Substance: DEXAMETHASONE
     Indication: Chronic graft versus host disease in skin
     Route: 065
  16. DEXAMETHASONE [Concomitant]
     Active Substance: DEXAMETHASONE
     Indication: Chronic graft versus host disease oral

REACTIONS (9)
  - Necrotising ulcerative gingivostomatitis [Recovered/Resolved]
  - Weight decreased [Unknown]
  - Chronic graft versus host disease in skin [Recovering/Resolving]
  - Chronic graft versus host disease oral [Recovering/Resolving]
  - Dermatitis [Unknown]
  - Oesophagitis [Unknown]
  - Drug ineffective for unapproved indication [Unknown]
  - Pericoronitis [Recovered/Resolved]
  - Off label use [Unknown]
